FAERS Safety Report 5939486-X (Version None)
Quarter: 2008Q4

REPORT INFORMATION
  Report Type: 
  Country: None (occurrence: None)
  Receive Date: 20081103
  Receipt Date: 20081029
  Transmission Date: 20090506
  Serious: Yes (Death, Other)
  Sender: FDA-Public Use
  Company Number: JP-ABBOTT-08P-087-0485057-00

PATIENT
  Sex: Male

DRUGS (27)
  1. CLARITHROMYCIN [Suspect]
     Indication: BRONCHOPULMONARY ASPERGILLOSIS
     Route: 048
     Dates: start: 20061218, end: 20070106
  2. CLARITHROMYCIN [Suspect]
     Dates: start: 20061213, end: 20061217
  3. AMPHOTERICIN B [Suspect]
     Indication: BRONCHOPULMONARY ASPERGILLOSIS
     Route: 042
     Dates: start: 20061210, end: 20061212
  4. AMPHOTERICIN B [Suspect]
     Route: 042
     Dates: start: 20061213, end: 20061217
  5. AMPHOTERICIN B [Suspect]
     Route: 042
     Dates: start: 20061218, end: 20061219
  6. AMPHOTERICIN B [Suspect]
     Route: 042
     Dates: start: 20061220, end: 20071225
  7. AMPHOTERICIN B [Suspect]
     Route: 042
     Dates: start: 20070127, end: 20070130
  8. AMPHOTERICIN B [Suspect]
     Route: 042
     Dates: start: 20070131, end: 20070203
  9. AMPHOTERICIN B [Suspect]
     Route: 042
     Dates: start: 20070204, end: 20070206
  10. AMPHOTERICIN B [Suspect]
     Route: 042
     Dates: start: 20070207, end: 20070213
  11. FAMOTIDINE [Concomitant]
     Indication: DRUG USE FOR UNKNOWN INDICATION
     Dates: end: 20070322
  12. CARVEDILOL [Concomitant]
     Indication: DRUG USE FOR UNKNOWN INDICATION
     Dates: end: 20070324
  13. BACTRIM [Concomitant]
     Indication: DRUG USE FOR UNKNOWN INDICATION
     Dates: start: 20061101, end: 20070301
  14. MICAFUNGIN SODIUM [Concomitant]
     Indication: DRUG USE FOR UNKNOWN INDICATION
     Dates: start: 20061117, end: 20061128
  15. MICAFUNGIN SODIUM [Concomitant]
     Dates: start: 20061206, end: 20061210
  16. ITRACONAZOLE [Concomitant]
     Indication: DRUG USE FOR UNKNOWN INDICATION
     Dates: start: 20061128, end: 20061206
  17. BIAPENEM [Concomitant]
     Indication: DRUG USE FOR UNKNOWN INDICATION
     Dates: start: 20061205, end: 20061224
  18. BIAPENEM [Concomitant]
     Dates: start: 20061230, end: 20070125
  19. BIAPENEM [Concomitant]
     Dates: start: 20070130, end: 20070202
  20. VANCOMYCIN HYDROCHLORIDE [Concomitant]
     Indication: DRUG USE FOR UNKNOWN INDICATION
     Dates: start: 20061210, end: 20061230
  21. VANCOMYCIN HYDROCHLORIDE [Concomitant]
     Dates: start: 20070201, end: 20070227
  22. PLATELETS, CONCENTRATED [Concomitant]
     Indication: DRUG USE FOR UNKNOWN INDICATION
     Dates: start: 20061211, end: 20070328
  23. HUMAN RED BLOOD CELLS [Concomitant]
     Indication: DRUG USE FOR UNKNOWN INDICATION
     Dates: start: 20061215, end: 20070318
  24. CYTARABINE [Concomitant]
     Indication: DRUG USE FOR UNKNOWN INDICATION
     Dates: start: 20070106, end: 20070110
  25. DEXTROMETHORPHAN HYDROBROMIDE [Concomitant]
     Indication: DRUG USE FOR UNKNOWN INDICATION
     Dates: start: 20070202, end: 20070324
  26. ACETAMINOPHEN [Concomitant]
     Indication: DRUG USE FOR UNKNOWN INDICATION
     Dates: start: 20070203, end: 20070324
  27. ALLOPURINOL [Concomitant]
     Indication: DRUG USE FOR UNKNOWN INDICATION
     Dates: start: 20070227, end: 20070319

REACTIONS (6)
  - BLOOD CREATININE INCREASED [None]
  - CONDITION AGGRAVATED [None]
  - ILL-DEFINED DISORDER [None]
  - LEUKAEMIA [None]
  - LIVER DISORDER [None]
  - PYREXIA [None]
